FAERS Safety Report 12931231 (Version 1)
Quarter: 2016Q4

REPORT INFORMATION
  Report Type: Spontaneous
  Country: US (occurrence: US)
  Receive Date: 20161110
  Receipt Date: 20161110
  Transmission Date: 20170207
  Serious: No
  Sender: FDA-Public Use
  Company Number: US-JAZZ-2016-US-017937

PATIENT
  Sex: Female

DRUGS (13)
  1. MAGNESIUM OXIDE. [Concomitant]
     Active Substance: MAGNESIUM OXIDE
  2. MULTIVITAMIN [Concomitant]
     Active Substance: VITAMINS
  3. XYREM [Suspect]
     Active Substance: SODIUM OXYBATE
     Indication: HEMIPLEGIA
     Dosage: 1.75 G, QD
     Route: 048
     Dates: start: 201106, end: 2011
  4. CHLORAL HYDRATE [Concomitant]
     Active Substance: CHLORAL HYDRATE
  5. MIDAZOLAM HCL [Concomitant]
     Active Substance: MIDAZOLAM HYDROCHLORIDE
  6. FLUNARIZINE [Concomitant]
     Active Substance: FLUNARIZINE
  7. NORETHINDRONE. [Concomitant]
     Active Substance: NORETHINDRONE
  8. XYREM [Suspect]
     Active Substance: SODIUM OXYBATE
     Dosage: 1 G, BID
     Route: 048
     Dates: start: 201605, end: 2016
  9. XYREM [Suspect]
     Active Substance: SODIUM OXYBATE
     Dosage: 4 G, BID
     Route: 048
     Dates: start: 201608
  10. ALPRAZOLAM. [Concomitant]
     Active Substance: ALPRAZOLAM
  11. BENADRYL ALLERGY [Concomitant]
     Active Substance: DIPHENHYDRAMINE HYDROCHLORIDE
  12. MELATONIN [Concomitant]
     Active Substance: MELATONIN
  13. COENZYME Q10 [Concomitant]
     Active Substance: UBIDECARENONE

REACTIONS (1)
  - Insomnia [Not Recovered/Not Resolved]
